FAERS Safety Report 5247820-1 (Version None)
Quarter: 2007Q1

REPORT INFORMATION
  Report Type: 
  Country: None (occurrence: None)
  Receive Date: 20070227
  Receipt Date: 20070227
  Transmission Date: 20070707
  Serious: No
  Sender: FDA-Public Use
  Company Number: None

PATIENT
  Age: 43 Year
  Sex: Male

DRUGS (1)
  1. CYCLOPHOSPHAMIDE [Suspect]
     Indication: NEPHROTIC SYNDROME
     Dosage: 150MG QD PO
     Route: 048
     Dates: start: 20061128, end: 20070222

REACTIONS (1)
  - WHITE BLOOD CELL COUNT DECREASED [None]
